FAERS Safety Report 17151560 (Version 1)
Quarter: 2019Q4

REPORT INFORMATION
  Report Type: Spontaneous
  Country: MY (occurrence: MY)
  Receive Date: 20191213
  Receipt Date: 20191213
  Transmission Date: 20200122
  Serious: Yes (Other)
  Sender: FDA-Public Use
  Company Number: MY-NOVOPROD-700919

PATIENT
  Age: 32 Year
  Sex: Female

DRUGS (1)
  1. ACTRAPID [Suspect]
     Active Substance: INSULIN HUMAN
     Indication: GESTATIONAL DIABETES
     Dosage: 6 IU, TID (DOSE INTERVAL 8 HRS)
     Route: 058

REACTIONS (2)
  - Maternal exposure during pregnancy [Unknown]
  - Pruritus [Recovering/Resolving]
